FAERS Safety Report 9034430 (Version 1)
Quarter: 2013Q1

REPORT INFORMATION
  Report Type: Spontaneous
  Country: US (occurrence: None)
  Receive Date: 20130116
  Receipt Date: 20130116
  Transmission Date: 20140127
  Serious: Yes (Other)
  Sender: FDA-Public Use
  Company Number: None

PATIENT
  Age: 33 Year
  Sex: Female
  Weight: 65.77 kg

DRUGS (1)
  1. ESCITALOPRAM [Suspect]
     Indication: ANXIETY
     Dosage: 5 MG  1 PILL/DAY  ORAL
     Route: 048
     Dates: start: 20120112

REACTIONS (7)
  - Palpitations [None]
  - Hyperhidrosis [None]
  - Dizziness [None]
  - Diarrhoea [None]
  - Fatigue [None]
  - Nausea [None]
  - Vomiting [None]
